FAERS Safety Report 5112835-0 (Version None)
Quarter: 2006Q3

REPORT INFORMATION
  Report Type: 
  Country: None (occurrence: None)
  Receive Date: 20060731
  Receipt Date: 20060628
  Transmission Date: 20061208
  Serious: No
  Sender: FDA-Public Use
  Company Number: 2006PV016639

PATIENT
  Age: 52 Year
  Sex: Male
  Weight: 79.3795 kg

DRUGS (4)
  1. BYETTA [Suspect]
     Indication: DIABETES MELLITUS INSULIN-DEPENDENT
     Dosage: SEE IMAGE
     Route: 058
     Dates: start: 20060104, end: 20060205
  2. BYETTA [Suspect]
     Indication: DIABETES MELLITUS INSULIN-DEPENDENT
     Dosage: SEE IMAGE
     Route: 058
     Dates: start: 20060206, end: 20060220
  3. METFORMIN HCL [Concomitant]
  4. HUMULIN 50/50 [Concomitant]

REACTIONS (1)
  - AMNESIA [None]
